FAERS Safety Report 23673066 (Version 4)
Quarter: 2024Q2

REPORT INFORMATION
  Report Type: Spontaneous
  Country: US (occurrence: US)
  Receive Date: 20240326
  Receipt Date: 20240611
  Transmission Date: 20240716
  Serious: No
  Sender: FDA-Public Use
  Company Number: US-PFIZER INC-202400068289

PATIENT
  Age: 57 Year
  Sex: Female
  Weight: 63.05 kg

DRUGS (1)
  1. GENOTROPIN [Suspect]
     Active Substance: SOMATROPIN
     Indication: Adrenal insufficiency
     Dosage: UNK UNK, 1X/DAY (0.25)
     Dates: start: 2019

REACTIONS (2)
  - Off label use [Unknown]
  - Device leakage [Unknown]
